FAERS Safety Report 15562051 (Version 2)
Quarter: 2018Q4

REPORT INFORMATION
  Report Type: Spontaneous
  Country: US (occurrence: US)
  Receive Date: 20181029
  Receipt Date: 20181221
  Transmission Date: 20190205
  Serious: Yes (Other)
  Sender: FDA-Public Use
  Company Number: US-ASTRAZENECA-2018SF39741

PATIENT
  Age: 55 Year
  Sex: Female
  Weight: 88.5 kg

DRUGS (6)
  1. ALBUTEROL SULFATE. [Concomitant]
     Active Substance: ALBUTEROL SULFATE
     Indication: PROPHYLAXIS
     Dosage: AS REQUIRED
     Route: 055
  2. VENTOLIN HFA [Concomitant]
     Active Substance: ALBUTEROL SULFATE
     Indication: PROPHYLAXIS
     Dosage: AS REQUIRED
     Route: 055
  3. METOPROLOL SUCCINATE. [Suspect]
     Active Substance: METOPROLOL SUCCINATE
     Indication: HYPERTENSION
     Route: 048
     Dates: start: 2015
  4. SPIRONOLACTONE. [Concomitant]
     Active Substance: SPIRONOLACTONE
     Indication: SWELLING
     Route: 048
  5. SYMBICORT [Suspect]
     Active Substance: BUDESONIDE\FORMOTEROL FUMARATE DIHYDRATE
     Indication: ASTHMA
     Dosage: 160/4.5 MCG UNKNOWN UNKNOWN
     Route: 055
  6. ESOMEPRAZOLE. [Suspect]
     Active Substance: ESOMEPRAZOLE MAGNESIUM
     Indication: DYSPEPSIA
     Route: 048

REACTIONS (24)
  - Chronic obstructive pulmonary disease [Unknown]
  - Dysgeusia [Unknown]
  - Wrong technique in product usage process [Unknown]
  - Intervertebral disc protrusion [Unknown]
  - Wheezing [Unknown]
  - Productive cough [Unknown]
  - Gait disturbance [Unknown]
  - Product taste abnormal [Unknown]
  - Rotator cuff syndrome [Unknown]
  - Hypertension [Unknown]
  - Asthma [Unknown]
  - Neuralgia [Unknown]
  - Dysstasia [Unknown]
  - Eye disorder [Unknown]
  - Dyspnoea [Unknown]
  - Fall [Unknown]
  - Nasopharyngitis [Unknown]
  - Joint swelling [Unknown]
  - Dry mouth [Unknown]
  - Gastrooesophageal reflux disease [Unknown]
  - Bronchitis [Unknown]
  - Breath odour [Unknown]
  - Intentional device misuse [Unknown]
  - Drug ineffective [Unknown]

NARRATIVE: CASE EVENT DATE: 2010
